FAERS Safety Report 25451023 (Version 2)
Quarter: 2025Q2

REPORT INFORMATION
  Report Type: Spontaneous
  Country: DE (occurrence: DE)
  Receive Date: 20250618
  Receipt Date: 20250623
  Transmission Date: 20250716
  Serious: Yes (Other)
  Sender: TORRENT PHARMA INC.
  Company Number: None

PATIENT
  Age: 47 Year
  Sex: Female

DRUGS (3)
  1. ESCITALOPRAM [Suspect]
     Active Substance: ESCITALOPRAM OXALATE
     Indication: Product used for unknown indication
     Route: 048
     Dates: start: 20240903, end: 20240910
  2. MELATONIN [Concomitant]
     Active Substance: MELATONIN
     Indication: Hypothalamo-pituitary disorder
     Dosage: FOR APPROX. 1 YEAR - B.A.W (UNTIL FURTHER ?NOTICE)
     Route: 048
  3. PROMETHAZINE [Concomitant]
     Active Substance: PROMETHAZINE HYDROCHLORIDE
     Indication: Product used for unknown indication
     Dosage: B.A.W. (UNTIL FURTHER NOTICE)
     Route: 048
     Dates: start: 20240924

REACTIONS (1)
  - Amenorrhoea [Not Recovered/Not Resolved]

NARRATIVE: CASE EVENT DATE: 20240908
